FAERS Safety Report 13277006 (Version 1)
Quarter: 2017Q1

REPORT INFORMATION
  Report Type: Spontaneous
  Country: US (occurrence: US)
  Receive Date: 20170228
  Receipt Date: 20170228
  Transmission Date: 20170428
  Serious: Yes (Other)
  Sender: FDA-Public Use
  Company Number: US-AMGEN-USASP2017028282

PATIENT
  Age: 80 Year
  Sex: Female

DRUGS (1)
  1. PROLIA [Suspect]
     Active Substance: DENOSUMAB
     Indication: PRODUCT USED FOR UNKNOWN INDICATION
     Dosage: UNK
     Route: 065
     Dates: start: 20161017

REACTIONS (6)
  - Immune system disorder [Unknown]
  - Anaemia [Unknown]
  - Cystitis [Unknown]
  - Arthralgia [Unknown]
  - Road traffic accident [Unknown]
  - Abdominal abscess [Unknown]

NARRATIVE: CASE EVENT DATE: 201701
